FAERS Safety Report 6239549-8 (Version None)
Quarter: 2009Q2

REPORT INFORMATION
  Report Type: 
  Country: None (occurrence: None)
  Receive Date: 20090622
  Receipt Date: 20090612
  Transmission Date: 20091009
  Serious: Yes (Other)
  Sender: FDA-Public Use
  Company Number: US-AMGEN-QUU351477

PATIENT
  Sex: Female

DRUGS (1)
  1. ENBREL [Suspect]
     Indication: RHEUMATOID ARTHRITIS
     Route: 058
     Dates: start: 20010613

REACTIONS (5)
  - CHEST DISCOMFORT [None]
  - COUGH [None]
  - JAW DISORDER [None]
  - RASH [None]
  - TOOTH DISORDER [None]
